FAERS Safety Report 8235314-0 (Version None)
Quarter: 2012Q1

REPORT INFORMATION
  Report Type: 
  Country: None (occurrence: None)
  Receive Date: 20120307
  Receipt Date: 20110314
  Transmission Date: 20120608
  Serious: Yes (Life-Threatening, Disabling)
  Sender: FDA-Public Use
  Company Number: PHHY2010US86883

PATIENT
  Sex: Male

DRUGS (14)
  1. AFINITOR [Suspect]
     Indication: RENAL CELL CARCINOMA
     Dosage: 10 MG, QD, ORAL
     Route: 048
     Dates: start: 20100909, end: 20101116
  2. COLACE (DOCUSATE SODIUM) CAPSULE [Concomitant]
  3. CYMBALTA [Concomitant]
  4. COMBIVENT [Concomitant]
  5. FLOMAX [Concomitant]
  6. PROSCAR [Concomitant]
  7. VITAMIN B12 (CYANOCOBALAMIN) TABLET [Concomitant]
  8. FENTANYL [Concomitant]
  9. LASIX [Concomitant]
  10. ATORVASTATIN CALCIUM [Concomitant]
  11. HYDROCODONE W/PARACETAMOL (HYDROCODONE, PARACETAMOL) [Concomitant]
  12. SENNA (SENNA, SENNA ALEXANDRINA) TABLET [Concomitant]
  13. DEXAMETHASONE TAB [Concomitant]
  14. SYMBICORT [Concomitant]

REACTIONS (7)
  - OXYGEN SATURATION [None]
  - COUGH [None]
  - FATIGUE [None]
  - PNEUMONITIS [None]
  - DYSPNOEA [None]
  - DYSPNOEA EXERTIONAL [None]
  - MALAISE [None]
